FAERS Safety Report 6334855-0 (Version None)
Quarter: 2009Q3

REPORT INFORMATION
  Report Type: 
  Country: None (occurrence: None)
  Receive Date: 20090828
  Receipt Date: 20090828
  Transmission Date: 20100115
  Serious: Yes (Life-Threatening, Hospitalization)
  Sender: FDA-Public Use
  Company Number: None

PATIENT
  Age: 52 Year
  Sex: Male
  Weight: 105.9 kg

DRUGS (2)
  1. DRONEDARONE [Suspect]
     Indication: ATRIAL FIBRILLATION
     Dosage: 400MG PO BID
     Route: 048
     Dates: start: 20090731, end: 20090801
  2. DRONEDARONE [Suspect]
     Indication: DRUG INTOLERANCE
     Dosage: 400MG PO BID
     Route: 048
     Dates: start: 20090731, end: 20090801

REACTIONS (12)
  - AGITATION [None]
  - CARDIAC FAILURE CONGESTIVE [None]
  - CARDIOGENIC SHOCK [None]
  - CONDITION AGGRAVATED [None]
  - CONFUSIONAL STATE [None]
  - DYSKINESIA [None]
  - LACTIC ACIDOSIS [None]
  - MENTAL STATUS CHANGES [None]
  - METABOLIC ACIDOSIS [None]
  - MUSCLE SPASMS [None]
  - RENAL FAILURE ACUTE [None]
  - TREMOR [None]
